FAERS Safety Report 5763218-1 (Version None)
Quarter: 2008Q2

REPORT INFORMATION
  Report Type: 
  Country: None (occurrence: None)
  Receive Date: 20080609
  Receipt Date: 20080530
  Transmission Date: 20081010
  Serious: Yes (Hospitalization)
  Sender: FDA-Public Use
  Company Number: FR-PFIZER INC-2008046458

PATIENT
  Sex: Male
  Weight: 65 kg

DRUGS (13)
  1. SOLU-MEDROL [Suspect]
     Route: 042
     Dates: start: 20080205, end: 20080205
  2. CISPLATIN ^DAKOTA PHARM^ [Suspect]
     Indication: CHEMOTHERAPY
     Route: 042
     Dates: start: 20080205, end: 20080205
  3. ZOPHREN [Suspect]
     Route: 042
     Dates: start: 20080204, end: 20080206
  4. FLUOROURACIL [Suspect]
     Indication: CHEMOTHERAPY
     Route: 042
     Dates: start: 20080204, end: 20080206
  5. PRIMPERAN TAB [Suspect]
     Route: 042
     Dates: start: 20080204, end: 20080206
  6. LASILIX [Suspect]
     Route: 042
  7. CIPROFLOXACIN HCL [Concomitant]
  8. TRIATEC [Concomitant]
     Indication: HYPERTENSION
     Route: 048
     Dates: start: 20000101, end: 20080207
  9. LANTUS [Concomitant]
  10. REPAGLINIDE [Concomitant]
  11. ZEFFIX [Concomitant]
  12. CARDENSIEL [Concomitant]
  13. XATRAL [Concomitant]

REACTIONS (1)
  - RENAL FAILURE ACUTE [None]
